FAERS Safety Report 7274980-3 (Version None)
Quarter: 2011Q1

REPORT INFORMATION
  Report Type: 
  Country: None (occurrence: None)
  Receive Date: 20110204
  Receipt Date: 20110124
  Transmission Date: 20110831
  Serious: Yes (Hospitalization)
  Sender: FDA-Public Use
  Company Number: US-SANOFI-AVENTIS-2010SA072651

PATIENT
  Age: 72 Year
  Sex: Male
  Weight: 67.27 kg

DRUGS (20)
  1. AMIODARONE HCL [Concomitant]
     Indication: ATRIAL FIBRILLATION
  2. FAMOTIDINE [Concomitant]
     Dates: start: 20101125
  3. FERROUS SULFATE TAB [Concomitant]
  4. SPIRIVA [Concomitant]
  5. PLAVIX [Suspect]
     Indication: MYOCARDIAL INFARCTION
     Route: 048
     Dates: start: 20101112
  6. PLAVIX [Suspect]
     Route: 048
  7. PLAVIX [Suspect]
     Route: 048
  8. ASPIRIN [Suspect]
     Indication: STENT PLACEMENT
     Route: 065
     Dates: start: 20101101
  9. SIMVASTATIN [Concomitant]
  10. ATORVASTATIN [Concomitant]
     Dates: start: 20101125
  11. COUMADIN [Suspect]
     Indication: ATRIAL FIBRILLATION
     Route: 065
     Dates: start: 20101101
  12. OTHER RESPIRATORY SYSTEM PRODUCTS [Concomitant]
  13. ALL OTHER THERAPEUTIC PRODUCTS [Concomitant]
  14. CARDIZEM CD [Concomitant]
     Indication: MYOCARDIAL INFARCTION
  15. LASIX [Concomitant]
     Indication: MYOCARDIAL INFARCTION
     Dates: start: 20101125
  16. LISINOPRIL [Concomitant]
     Indication: MYOCARDIAL INFARCTION
     Dates: start: 20101125
  17. XOPENEX [Concomitant]
  18. PREDNISONE [Concomitant]
  19. PLAVIX [Suspect]
     Indication: STENT PLACEMENT
     Route: 048
     Dates: start: 20101112
  20. ADVAIR [Concomitant]

REACTIONS (3)
  - HAEMOGLOBIN DECREASED [None]
  - GASTROINTESTINAL HAEMORRHAGE [None]
  - INTERNATIONAL NORMALISED RATIO INCREASED [None]
